FAERS Safety Report 9680052 (Version 1)
Quarter: 2013Q4

REPORT INFORMATION
  Report Type: Spontaneous
  Country: US (occurrence: US)
  Receive Date: 20131110
  Receipt Date: 20131110
  Transmission Date: 20140711
  Serious: No
  Sender: FDA-Public Use
  Company Number: US-009507513-1311USA001402

PATIENT
  Age: 60 Year
  Sex: Male

DRUGS (2)
  1. SAPHRIS [Suspect]
     Dosage: 10 MG, BID
     Route: 060
     Dates: start: 201310, end: 2013
  2. VIIBRYD [Concomitant]

REACTIONS (1)
  - Epistaxis [Unknown]
